FAERS Safety Report 18006495 (Version 1)
Quarter: 2020Q3

REPORT INFORMATION
  Report Type: Spontaneous
  Country: US (occurrence: US)
  Receive Date: 20200709
  Receipt Date: 20200709
  Transmission Date: 20201103
  Serious: Yes (Hospitalization)
  Sender: FDA-Public Use
  Company Number: None

PATIENT
  Age: 58 Year
  Sex: Female

DRUGS (23)
  1. METHOTREXATE. [Concomitant]
     Active Substance: METHOTREXATE
  2. METHYLPRED [Concomitant]
     Active Substance: METHYLPREDNISOLONE
  3. NAPROXEN. [Concomitant]
     Active Substance: NAPROXEN
  4. POT CITRATE [Concomitant]
     Active Substance: POTASSIUM CITRATE
  5. TIZANIDINE. [Concomitant]
     Active Substance: TIZANIDINE
  6. VIRTUSSIN AC [Concomitant]
     Active Substance: CODEINE PHOSPHATE\GUAIFENESIN
  7. LASIX [Concomitant]
     Active Substance: FUROSEMIDE
  8. VORICONAZOLE. [Concomitant]
     Active Substance: VORICONAZOLE
  9. XELJANZ XR [Suspect]
     Active Substance: TOFACITINIB CITRATE
     Indication: RHEUMATOID ARTHRITIS
     Route: 048
     Dates: start: 20190416
  10. MELOXICAM. [Concomitant]
     Active Substance: MELOXICAM
  11. AMOX/K CLAV [Concomitant]
     Active Substance: AMOXICILLIN\CLAVULANATE POTASSIUM
  12. AMOXICILLIN. [Concomitant]
     Active Substance: AMOXICILLIN
  13. DOXYCYCL HCL [Concomitant]
  14. FLUCONAZOLE. [Concomitant]
     Active Substance: FLUCONAZOLE
  15. SIMVASTATIN. [Concomitant]
     Active Substance: SIMVASTATIN
  16. AZITHROMYCIN ANHYDROUS. [Concomitant]
     Active Substance: AZITHROMYCIN ANHYDROUS
  17. FOLIC ACID. [Concomitant]
     Active Substance: FOLIC ACID
  18. DIAZEPAM. [Concomitant]
     Active Substance: DIAZEPAM
  19. ENALAPRIL [Concomitant]
     Active Substance: ENALAPRIL
  20. LEVOTHYROXIN [Concomitant]
     Active Substance: LEVOTHYROXINE
  21. NYSTATIN. [Concomitant]
     Active Substance: NYSTATIN
  22. PREDNISONE. [Concomitant]
     Active Substance: PREDNISONE
  23. TRAMADOL HCL [Concomitant]
     Active Substance: TRAMADOL HYDROCHLORIDE

REACTIONS (2)
  - Pneumonia [None]
  - Urinary tract infection [None]

NARRATIVE: CASE EVENT DATE: 20200706
